FAERS Safety Report 20371876 (Version 1)
Quarter: 2022Q1

REPORT INFORMATION
  Report Type: Spontaneous
  Country: US (occurrence: US)
  Receive Date: 20220124
  Receipt Date: 20220124
  Transmission Date: 20220423
  Serious: No
  Sender: FDA-Public Use
  Company Number: US-PFIZER INC-202101467116

PATIENT
  Age: 57 Year
  Sex: Female
  Weight: 67.12 kg

DRUGS (3)
  1. IBRANCE [Suspect]
     Active Substance: PALBOCICLIB
     Indication: Breast cancer
     Dosage: 125 MG, CYCLIC, DAILY X 21 DAYS THEN 7 DAYS OFF
     Route: 048
     Dates: start: 20211008
  2. NEULASTA [Concomitant]
     Active Substance: PEGFILGRASTIM
     Indication: Breast cancer
     Dosage: UNK
  3. POTASSIUM GLUCONATE [Concomitant]
     Active Substance: POTASSIUM GLUCONATE
     Dosage: UNK

REACTIONS (2)
  - Fatigue [Recovered/Resolved]
  - Sluggishness [Recovering/Resolving]

NARRATIVE: CASE EVENT DATE: 20210101
